FAERS Safety Report 20188272 (Version 1)
Quarter: 2021Q4

REPORT INFORMATION
  Report Type: Spontaneous
  Country: US (occurrence: US)
  Receive Date: 20211215
  Receipt Date: 20211215
  Transmission Date: 20220303
  Serious: Yes (Other)
  Sender: FDA-Public Use
  Company Number: US-PURDUE-USA-2020-0197589

PATIENT
  Sex: Male

DRUGS (5)
  1. HYSINGLA ER [Suspect]
     Active Substance: HYDROCODONE BITARTRATE
     Indication: Intervertebral disc protrusion
     Dosage: UNKNOWN
     Route: 048
  2. HYSINGLA ER [Suspect]
     Active Substance: HYDROCODONE BITARTRATE
     Indication: Spinal operation
  3. HYDROCODONE BITARTRATE AND ACETAMINOPHEN [Suspect]
     Active Substance: ACETAMINOPHEN\HYDROCODONE BITARTRATE
     Indication: Intervertebral disc protrusion
     Dosage: UNKNOWN
     Route: 048
  4. HYDROCODONE BITARTRATE AND ACETAMINOPHEN [Suspect]
     Active Substance: ACETAMINOPHEN\HYDROCODONE BITARTRATE
     Indication: Spinal operation
  5. HYDROCODONE BITARTRATE [Suspect]
     Active Substance: HYDROCODONE BITARTRATE
     Indication: Product used for unknown indication
     Dosage: UNK
     Route: 048

REACTIONS (6)
  - Drug dependence [Unknown]
  - Drug abuse [Unknown]
  - Anxiety [Unknown]
  - Insomnia [Unknown]
  - Weight decreased [Unknown]
  - Illness [Unknown]
